FAERS Safety Report 7720935-1 (Version None)
Quarter: 2011Q3

REPORT INFORMATION
  Report Type: 
  Country: None (occurrence: None)
  Receive Date: 20110830
  Receipt Date: 20110830
  Transmission Date: 20111222
  Serious: No
  Sender: FDA-Public Use
  Company Number: None

PATIENT
  Age: 75 Year
  Sex: Female
  Weight: 65.7716 kg

DRUGS (1)
  1. AZITHROMYCIN [Suspect]
     Dosage: 250 MG 2 DAY/ 1 FOR 4 DAYS
     Dates: start: 20110302

REACTIONS (1)
  - GRANULOMA ANNULARE [None]
